FAERS Safety Report 6430672-1 (Version None)
Quarter: 2009Q4

REPORT INFORMATION
  Report Type: 
  Country: None (occurrence: None)
  Receive Date: 20091106
  Receipt Date: 20091029
  Transmission Date: 20100525
  Serious: Yes (Other)
  Sender: FDA-Public Use
  Company Number: B0601953A

PATIENT
  Sex: Female

DRUGS (17)
  1. AMOXICILLIN [Suspect]
     Route: 065
     Dates: start: 20090805, end: 20090810
  2. ALLI [Suspect]
     Dosage: 180MG PER DAY
     Route: 065
  3. DEPAKENE [Suspect]
     Dosage: 150MG TWICE PER DAY
     Route: 065
  4. FLUOXETINE [Suspect]
     Indication: DRUG USE FOR UNKNOWN INDICATION
     Route: 065
  5. SEROQUEL [Suspect]
     Indication: DRUG USE FOR UNKNOWN INDICATION
     Dosage: 100MG PER DAY
     Route: 065
     Dates: start: 20060101
  6. RIVOTRIL [Suspect]
     Indication: ANXIETY DISORDER
     Route: 065
  7. SIFROL [Suspect]
     Indication: EXTRAPYRAMIDAL DISORDER
     Dosage: .25MG PER DAY
     Route: 065
  8. DAFALGAN [Suspect]
     Indication: PAIN
     Route: 065
  9. ACETYLSALICYLIC ACID [Suspect]
     Indication: ABDOMINAL PAIN
     Route: 065
  10. MEFENAMIC ACID [Suspect]
     Indication: ABDOMINAL PAIN
     Route: 065
     Dates: start: 20090805
  11. LAXOBERON [Suspect]
     Indication: CONSTIPATION
     Route: 065
  12. PANCREATIN/DIMETHICONE [Suspect]
     Indication: DRUG USE FOR UNKNOWN INDICATION
     Route: 065
  13. LEVONORGESTREL [Suspect]
     Indication: CONTRACEPTION
     Route: 065
     Dates: start: 20090629, end: 20090630
  14. EXCEDRIN (MIGRAINE) [Suspect]
     Indication: DRUG USE FOR UNKNOWN INDICATION
     Route: 065
  15. IRON [Concomitant]
     Route: 065
     Dates: start: 20090722, end: 20090722
  16. SUPRADYN [Concomitant]
     Indication: DRUG USE FOR UNKNOWN INDICATION
     Route: 065
  17. CAFFEINE [Concomitant]
     Route: 065

REACTIONS (2)
  - ABORTION INDUCED [None]
  - DRUG EXPOSURE DURING PREGNANCY [None]
